FAERS Safety Report 8499541-X (Version None)
Quarter: 2012Q3

REPORT INFORMATION
  Report Type: 
  Country: None (occurrence: None)
  Receive Date: 20120710
  Receipt Date: 20120626
  Transmission Date: 20120928
  Serious: Yes (Hospitalization)
  Sender: FDA-Public Use
  Company Number: US-UCBSA-051469

PATIENT
  Age: 16 Year
  Sex: Male

DRUGS (7)
  1. VIMPAT [Suspect]
     Dosage: 2 IN MORNING AND 1 IN EVENING
     Dates: end: 20120106
  2. LAMOTRIGINE [Suspect]
     Indication: CONVULSION
     Dosage: 100 MG VARIABLE DOSE
     Route: 048
  3. LAMICTAL [Suspect]
     Indication: EPILEPSY
     Dosage: 3 YEARS
  4. LAMICTAL [Suspect]
     Route: 048
     Dates: start: 20100101
  5. SERTRALINE HYDROCHLORIDE [Concomitant]
  6. LAMICTAL [Suspect]
     Dosage: UNKNOWN DOSE
     Dates: start: 20111001
  7. TEGRETOL [Suspect]
     Dosage: UNKNOWN DOSE
     Dates: start: 20111101

REACTIONS (8)
  - CONVULSION [None]
  - VOMITING [None]
  - CYANOSIS [None]
  - ANXIETY [None]
  - FATIGUE [None]
  - COGNITIVE DISORDER [None]
  - DIZZINESS [None]
  - MALAISE [None]
